FAERS Safety Report 8760654 (Version 3)
Quarter: 2013Q4

REPORT INFORMATION
  Report Type: Spontaneous
  Country: US (occurrence: US)
  Receive Date: 20120830
  Receipt Date: 20131014
  Transmission Date: 20140711
  Serious: Yes (Hospitalization, Other)
  Sender: FDA-Public Use
  Company Number: US-BAYER-2012-087882

PATIENT
  Age: 36 Year
  Sex: Female
  Weight: 52.15 kg

DRUGS (21)
  1. GIANVI [Suspect]
     Dosage: UNK
     Dates: start: 2010, end: 2012
  2. YAZ [Suspect]
     Dosage: UNK
     Dates: start: 2006, end: 2010
  3. BEYAZ [Suspect]
     Indication: CONTRACEPTION
     Dosage: UNK
     Route: 048
     Dates: start: 2007, end: 2012
  4. ONDANSETRON HYDROCHLORIDE [Concomitant]
     Dosage: 8 MG, UNK
     Dates: start: 20120720, end: 20120725
  5. LEVOFLOXACIN [Concomitant]
     Dosage: 500 MG, UNK
     Dates: start: 20120725
  6. OMEPRAZOLE [Concomitant]
     Indication: DYSPEPSIA
     Dosage: 20 MG, DAILY
     Dates: start: 20060205, end: 20120805
  7. LOMOTIL [ATROPINE SULFATE,DIPHENOXYLATE HYDROCHLORIDE] [Concomitant]
     Dosage: 2.5 MG, QID
     Dates: start: 20120720, end: 20120805
  8. LIBRAX [Concomitant]
     Dosage: 5 MG, QID
     Dates: start: 20120722, end: 20120805
  9. FLAGYL [Concomitant]
     Dosage: 500 MG, TID
     Dates: start: 20120722, end: 20120805
  10. DIFLUCAN [Concomitant]
     Dosage: 100 MG, DAILY
     Dates: start: 20120725, end: 20120805
  11. LEVOTHYROXINE [Concomitant]
     Indication: THYROID DISORDER
     Dosage: 75 MCG
     Dates: start: 20061229
  12. ADENOSIN [Concomitant]
  13. ZOFRAN [Concomitant]
  14. SYNTHROID [Concomitant]
  15. VANCOMYCIN [Concomitant]
  16. VITAMIN D [COLECALCIFEROL] [Concomitant]
  17. MAGNESIUM OXIDE [Concomitant]
  18. DEPAKOTE [Concomitant]
     Indication: HEADACHE
  19. TOPAMAX [Concomitant]
     Indication: HEADACHE
  20. PROPANOLOL [Concomitant]
     Indication: HEADACHE
  21. MINOCYCLINE [Concomitant]

REACTIONS (7)
  - Pulmonary embolism [Recovering/Resolving]
  - Cardiac arrest [None]
  - Rib fracture [None]
  - Sternal fracture [None]
  - Tachycardia [None]
  - Salmonellosis [None]
  - Deep vein thrombosis [None]
